FAERS Safety Report 6426958-7 (Version None)
Quarter: 2009Q4

REPORT INFORMATION
  Report Type: 
  Country: None (occurrence: None)
  Receive Date: 20091030
  Receipt Date: 20091016
  Transmission Date: 20100525
  Serious: Yes (Hospitalization, Other)
  Sender: FDA-Public Use
  Company Number: 2009AC000260

PATIENT
  Age: 30 Year
  Sex: Female

DRUGS (6)
  1. DIGOXIN [Suspect]
     Dates: start: 19990101
  2. K-DUR [Concomitant]
  3. LASIX [Concomitant]
  4. ASPIRIN [Concomitant]
  5. SPIRONOLACTONE [Concomitant]
  6. MIRTAZAPINE [Concomitant]

REACTIONS (14)
  - ANAEMIA [None]
  - ASTHENIA [None]
  - CARDIAC FAILURE CONGESTIVE [None]
  - CARDIOMEGALY [None]
  - CARDIOMYOPATHY [None]
  - CHEST DISCOMFORT [None]
  - DIZZINESS [None]
  - DYSPNOEA [None]
  - ECONOMIC PROBLEM [None]
  - MULTIPLE INJURIES [None]
  - MUSCULAR WEAKNESS [None]
  - POSTPARTUM DISORDER [None]
  - SURGERY [None]
  - TRANSIENT ISCHAEMIC ATTACK [None]
